FAERS Safety Report 18454028 (Version 2)
Quarter: 2020Q4

REPORT INFORMATION
  Report Type: Spontaneous
  Country: FR (occurrence: FR)
  Receive Date: 20201102
  Receipt Date: 20201109
  Transmission Date: 20210114
  Serious: Yes (Hospitalization, Other)
  Sender: FDA-Public Use
  Company Number: NVSC2020FR158123

PATIENT
  Age: 20 Year
  Sex: Female

DRUGS (3)
  1. COLCHICINE. [Suspect]
     Active Substance: COLCHICINE
     Indication: HENOCH-SCHONLEIN PURPURA
     Dosage: 1 MG, QD
     Route: 065
  2. AZATHIOPRINE. [Concomitant]
     Active Substance: AZATHIOPRINE
     Indication: CROHN^S DISEASE
     Dosage: UNK
     Route: 065
  3. ADALIMUMAB [Suspect]
     Active Substance: ADALIMUMAB
     Indication: CROHN^S DISEASE
     Dosage: UNK
     Route: 065

REACTIONS (6)
  - Drug ineffective [Unknown]
  - Henoch-Schonlein purpura [Unknown]
  - Axial spondyloarthritis [Unknown]
  - Product use in unapproved indication [Unknown]
  - Neurological symptom [Recovered/Resolved]
  - Crohn^s disease [Unknown]
